FAERS Safety Report 10740476 (Version 1)
Quarter: 2015Q1

REPORT INFORMATION
  Report Type: Spontaneous
  Country: US (occurrence: US)
  Receive Date: 20150127
  Receipt Date: 20150127
  Transmission Date: 20150721
  Serious: No
  Sender: FDA-Public Use
  Company Number: US-B.I. PHARMACEUTICALS,INC./RIDGEFIELD-2015-BI-02225BP

PATIENT
  Sex: Female

DRUGS (10)
  1. JANUVIA [Concomitant]
     Active Substance: SITAGLIPTIN PHOSPHATE
     Indication: DIABETES MELLITUS
     Dosage: 100 MG
     Route: 048
     Dates: start: 2012
  2. IRBESARTAN. [Concomitant]
     Active Substance: IRBESARTAN
     Indication: CHRONIC OBSTRUCTIVE PULMONARY DISEASE
     Dosage: 150 MG
     Route: 048
     Dates: start: 2012
  3. DILTIAZEM [Concomitant]
     Active Substance: DILTIAZEM
     Indication: HEART RATE IRREGULAR
     Dosage: 60 MG
     Route: 048
  4. GLIMEPIRIDE. [Concomitant]
     Active Substance: GLIMEPIRIDE
     Indication: DIABETES MELLITUS
     Dosage: 8 MG
     Route: 048
     Dates: start: 2012
  5. COMBIVENT [Suspect]
     Active Substance: ALBUTEROL SULFATE\IPRATROPIUM BROMIDE
     Indication: CHRONIC OBSTRUCTIVE PULMONARY DISEASE
     Dosage: STRENGTH: 20 MCG / 100 MCG; DAILY DOSE: 80 MCG / 400 MCG
     Route: 055
  6. NOVOLOG [Concomitant]
     Active Substance: INSULIN ASPART
     Indication: DIABETES MELLITUS
     Dosage: FORMULATION: SUBCUTANEOUS; STRENGTH: 70-30
     Route: 058
     Dates: start: 2012
  7. HYDROCHLOROTHIAZIDE. [Concomitant]
     Active Substance: HYDROCHLOROTHIAZIDE
     Indication: FLUID RETENTION
     Dosage: 12.5 MG
     Route: 048
     Dates: start: 2010
  8. PRISTIQ EXTENDED RELEASE [Concomitant]
     Active Substance: DESVENLAFAXINE SUCCINATE
     Indication: NERVOUSNESS
     Dosage: 150 MG
     Route: 048
     Dates: start: 2012
  9. CLONAZEPAM. [Concomitant]
     Active Substance: CLONAZEPAM
     Indication: INSOMNIA
     Dosage: 0.5 MG
     Route: 048
     Dates: start: 2007
  10. COREG [Concomitant]
     Active Substance: CARVEDILOL
     Indication: HEART RATE IRREGULAR
     Dosage: 10 MG
     Route: 048

REACTIONS (3)
  - Lacrimation increased [Not Recovered/Not Resolved]
  - Pneumonia [Recovered/Resolved]
  - Eye discharge [Not Recovered/Not Resolved]

NARRATIVE: CASE EVENT DATE: 2012
